FAERS Safety Report 25226245 (Version 2)
Quarter: 2025Q2

REPORT INFORMATION
  Report Type: Spontaneous
  Country: RU (occurrence: RU)
  Receive Date: 20250422
  Receipt Date: 20250425
  Transmission Date: 20250716
  Serious: Yes (Hospitalization, Other)
  Sender: PFIZER
  Company Number: RU-MLMSERVICE-20250411-PI466899-00177-1

PATIENT
  Age: 67 Year
  Sex: Female
  Weight: 53 kg

DRUGS (8)
  1. HYDROCORTISONE [Interacting]
     Active Substance: HYDROCORTISONE
     Indication: Primary adrenal insufficiency
     Route: 042
     Dates: start: 202210
  2. HYDROCORTISONE [Interacting]
     Active Substance: HYDROCORTISONE
     Dosage: 20 MG, 1X/DAY (10 MG IN THE MORNING, 5 MG AT LUNCH, 5 MG IN THE EVENING)
     Dates: start: 2022
  3. FLUDROCORTISONE [Interacting]
     Active Substance: FLUDROCORTISONE
     Indication: Primary adrenal insufficiency
     Dates: start: 202210
  4. FLUDROCORTISONE [Interacting]
     Active Substance: FLUDROCORTISONE
     Dosage: 25 MG, 1X/DAY
     Dates: start: 2022
  5. RIFAMPIN [Interacting]
     Active Substance: RIFAMPIN
     Indication: Tuberculosis
     Dosage: 450 MG, 1X/DAY (IN THE MORNING ON AN EMPTY STOMACH)
     Dates: start: 202307, end: 2023
  6. ISONIAZID [Concomitant]
     Active Substance: ISONIAZID
     Indication: Tuberculosis
     Dosage: 300 MG, 1X/DAY (IN THE MORNING AFTER MEALS)
     Dates: start: 202307
  7. PYRAZINAMIDE [Concomitant]
     Active Substance: PYRAZINAMIDE
     Indication: Tuberculosis
     Dosage: 1500 MG, 1X/DAY (IN THE MORNING AFTER MEALS)
     Dates: start: 202307
  8. ETHAMBUTOL [Concomitant]
     Active Substance: ETHAMBUTOL HYDROCHLORIDE
     Indication: Tuberculosis
     Dosage: 1200 MG, 1X/DAY (AFTER LUNCH)
     Dates: start: 202307

REACTIONS (4)
  - Therapeutic product effect decreased [Unknown]
  - Adrenocortical insufficiency acute [Unknown]
  - Drug interaction [Unknown]
  - Drug metabolising enzyme increased [Unknown]

NARRATIVE: CASE EVENT DATE: 20230101
